FAERS Safety Report 23947311 (Version 1)
Quarter: 2024Q2

REPORT INFORMATION
  Report Type: Spontaneous
  Country: US (occurrence: US)
  Receive Date: 20240606
  Receipt Date: 20240606
  Transmission Date: 20240716
  Serious: Yes (Other)
  Sender: FDA-Public Use
  Company Number: US-TEVA-VS-3204915

PATIENT
  Age: 51 Year
  Sex: Male

DRUGS (3)
  1. MYCOPHENOLATE MOFETIL [Suspect]
     Active Substance: MYCOPHENOLATE MOFETIL
     Indication: Prophylaxis against graft versus host disease
     Route: 065
  2. CIDOFOVIR [Suspect]
     Active Substance: CIDOFOVIR
     Indication: Cystitis haemorrhagic
     Dosage: THE PATIENT RECEIVED CIDOFOVIR VIA IV INSTEAD OF THE SCHEDULED INTRAVESICULAR ROUTE (MEDICATION E...
     Route: 042
  3. TACROLIMUS [Suspect]
     Active Substance: TACROLIMUS
     Indication: Prophylaxis against graft versus host disease
     Route: 065

REACTIONS (5)
  - Nephropathy toxic [Unknown]
  - Bladder pain [Unknown]
  - Bladder spasm [Unknown]
  - Incorrect route of product administration [Unknown]
  - Drug ineffective [Unknown]
